FAERS Safety Report 18656410 (Version 1)
Quarter: 2020Q4

REPORT INFORMATION
  Report Type: Spontaneous
  Country: US (occurrence: US)
  Receive Date: 20201223
  Receipt Date: 20201223
  Transmission Date: 20210114
  Serious: Yes (Other)
  Sender: FDA-Public Use
  Company Number: US-PURDUE-USA-2020-0177976

PATIENT
  Sex: Male

DRUGS (7)
  1. OXYCONTIN [Suspect]
     Active Substance: OXYCODONE HYDROCHLORIDE
     Indication: MOVEMENT DISORDER
  2. HYDROCODONE BITARTRATE AND ACETAMINOPHEN [Suspect]
     Active Substance: ACETAMINOPHEN\HYDROCODONE BITARTRATE
     Indication: PRODUCT USED FOR UNKNOWN INDICATION
     Route: 048
  3. NEURONTIN [Suspect]
     Active Substance: GABAPENTIN
     Indication: PRODUCT USED FOR UNKNOWN INDICATION
     Route: 065
  4. KLONOPIN [Suspect]
     Active Substance: CLONAZEPAM
     Indication: PRODUCT USED FOR UNKNOWN INDICATION
     Route: 065
  5. OXYCONTIN [Suspect]
     Active Substance: OXYCODONE HYDROCHLORIDE
     Indication: MYOCLONUS
     Dosage: 10 MG, TID
     Route: 065
  6. OXYCODONE HCL CR TABLETS (SIMILAR TO NDA 22-272) [Suspect]
     Active Substance: OXYCODONE HYDROCHLORIDE
     Indication: PRODUCT USED FOR UNKNOWN INDICATION
     Dosage: 10 MG, TID
     Route: 048
  7. OXYCONTIN [Suspect]
     Active Substance: OXYCODONE HYDROCHLORIDE
     Indication: ROAD TRAFFIC ACCIDENT

REACTIONS (24)
  - Mood swings [Unknown]
  - Neck injury [Unknown]
  - Back injury [Unknown]
  - Fatigue [Unknown]
  - Anger [Unknown]
  - Mental disorder [Unknown]
  - Headache [Unknown]
  - Depression [Unknown]
  - Malaise [Unknown]
  - Irritability [None]
  - Dyspnoea [Unknown]
  - Intervertebral disc protrusion [Unknown]
  - Nausea [Unknown]
  - Feeling jittery [Unknown]
  - Drug withdrawal syndrome [Unknown]
  - Abdominal pain lower [Unknown]
  - Cognitive disorder [Unknown]
  - Disturbance in attention [Unknown]
  - Brain injury [Unknown]
  - Drug dependence [Unknown]
  - Erectile dysfunction [Unknown]
  - Constipation [Unknown]
  - Amnesia [Unknown]
  - Somnolence [Unknown]
